FAERS Safety Report 7352632-9 (Version None)
Quarter: 2011Q1

REPORT INFORMATION
  Report Type: 
  Country: None (occurrence: None)
  Receive Date: 20110301
  Receipt Date: 20100224
  Transmission Date: 20110831
  Serious: Yes (Other)
  Sender: FDA-Public Use
  Company Number: RB-25621-2009

PATIENT
  Age: 12 Month
  Sex: Female
  Weight: 7.7111 kg

DRUGS (1)
  1. SUBOXONE [Suspect]
     Indication: ACCIDENTAL EXPOSURE
     Dosage: (INFANT TOOK SUBOXONE ONE TIME, UNKNOWN DOSE ORALLY ORAL)
     Route: 048
     Dates: start: 20091123, end: 20091123

REACTIONS (2)
  - SOMNOLENCE [None]
  - ACCIDENTAL EXPOSURE [None]
